FAERS Safety Report 4556627-X (Version None)
Quarter: 2005Q1

REPORT INFORMATION
  Report Type: 
  Country: None (occurrence: None)
  Receive Date: 20050118
  Receipt Date: 20050105
  Transmission Date: 20050727
  Serious: Yes (Other)
  Sender: FDA-Public Use
  Company Number: 2005003210

PATIENT
  Age: 30 Year
  Sex: Female

DRUGS (6)
  1. NAVANE [Suspect]
     Indication: HALLUCINATION
     Dosage: ORAL
     Route: 048
     Dates: start: 20041201, end: 20041201
  2. GEODON [Suspect]
     Indication: HALLUCINATION
     Dosage: 160 MG (80 MG, 2 IN 1 D), ORAL
     Route: 048
  3. SERTRALINE HCL [Concomitant]
  4. QUETIAPINE FUMARATE (QUETIAPINE FUMARATE) [Concomitant]
  5. VALPROATE SODIUM [Concomitant]
  6. TRAZODONE (TRAZODONE) [Concomitant]

REACTIONS (6)
  - DISEASE RECURRENCE [None]
  - FEELING ABNORMAL [None]
  - HALLUCINATION [None]
  - LOSS OF CONSCIOUSNESS [None]
  - PHARMACEUTICAL PRODUCT COMPLAINT [None]
  - TREATMENT NONCOMPLIANCE [None]
